FAERS Safety Report 5267733-9 (Version None)
Quarter: 2007Q1

REPORT INFORMATION
  Report Type: 
  Country: None (occurrence: None)
  Receive Date: 20070316
  Receipt Date: 20070305
  Transmission Date: 20070707
  Serious: Yes (Death)
  Sender: FDA-Public Use
  Company Number: BE-PFIZER INC-2007012524

PATIENT

DRUGS (2)
  1. SERTRALINE [Suspect]
     Dosage: TEXT:UNKNOWN
  2. METHADONE HCL [Suspect]
     Dosage: TEXT:UNKNOWN

REACTIONS (1)
  - DRUG TOXICITY [None]
